FAERS Safety Report 4649441-8 (Version None)
Quarter: 2005Q2

REPORT INFORMATION
  Report Type: 
  Country: None (occurrence: None)
  Receive Date: 20050331
  Receipt Date: 20041221
  Transmission Date: 20051028
  Serious: No
  Sender: FDA-Public Use
  Company Number: 04P-163-0284361-00

PATIENT
  Age: 65 Year
  Sex: Female

DRUGS (14)
  1. HUMIRA [Suspect]
     Indication: RHEUMATOID ARTHRITIS
     Dosage: 40 MG, 1 IN 2 WK, SUBCUTANEOUS
     Route: 058
     Dates: start: 20031230, end: 20041101
  2. AMLODIPINE BESYLATE [Concomitant]
  3. ESTROGENS CONJUGATED [Concomitant]
  4. ATENOLOL [Concomitant]
  5. FOLIC ACID [Concomitant]
  6. LEVOTHYROXINE SODIUM [Concomitant]
  7. FUROSEMIDE [Concomitant]
  8. NABUMETONE [Concomitant]
  9. PREDNISONE TAB [Concomitant]
  10. ZETIA [Concomitant]
  11. ASPRIRIN [Concomitant]
  12. RISEDRONATE SODIUM [Concomitant]
  13. METHOTREXATE [Concomitant]
  14. ISOSORBIDE DINITRATE [Concomitant]

REACTIONS (2)
  - HERPES VIRUS INFECTION [None]
  - HERPES ZOSTER [None]
